FAERS Safety Report 14024087 (Version 1)
Quarter: 2017Q3

REPORT INFORMATION
  Report Type: Spontaneous
  Country: US (occurrence: None)
  Receive Date: 20170929
  Receipt Date: 20170929
  Transmission Date: 20171128
  Serious: No
  Sender: FDA-Public Use
  Company Number: None

PATIENT
  Age: 70 Year
  Sex: Male

DRUGS (1)
  1. HYDROCORTISONE. [Suspect]
     Active Substance: HYDROCORTISONE
     Route: 048
     Dates: start: 20170219, end: 20170223

REACTIONS (1)
  - Hypokalaemia [None]

NARRATIVE: CASE EVENT DATE: 20170221
